FAERS Safety Report 9275830 (Version 1)
Quarter: 2013Q2

REPORT INFORMATION
  Report Type: Spontaneous
  Country: IT (occurrence: IT)
  Receive Date: 20130507
  Receipt Date: 20130507
  Transmission Date: 20140414
  Serious: Yes (Hospitalization)
  Sender: FDA-Public Use
  Company Number: IT-TEVA-402547ISR

PATIENT
  Age: 45 Year
  Sex: Female

DRUGS (2)
  1. LORAZEPAM [Suspect]
     Dates: start: 20130313, end: 20130313
  2. TRITTICO [Suspect]
     Dates: start: 20130313, end: 20130313

REACTIONS (2)
  - Drug abuse [Recovering/Resolving]
  - Toxicity to various agents [Recovering/Resolving]
